FAERS Safety Report 8793538 (Version 2)
Quarter: 2012Q4

REPORT INFORMATION
  Report Type: 
  Country: US (occurrence: US)
  Receive Date: 20120918
  Receipt Date: 20121030
  Transmission Date: 20130627
  Serious: Yes (Hospitalization)
  Sender: FDA-Public Use
  Company Number: PHEH2012US018134

PATIENT
  Age: 61 Year
  Sex: Female
  Weight: 96.6 kg

DRUGS (35)
  1. AFINITOR [Suspect]
     Indication: BREAST CANCER
     Dosage: 10 mg, daily
     Route: 048
     Dates: start: 20120829
  2. AROMASIN [Suspect]
     Indication: BREAST CANCER
     Dosage: 30 mg, daily
     Route: 048
  3. MYAMBUTOL [Concomitant]
     Dosage: 1200 mg, QD
     Route: 048
  4. ISONIAZID [Concomitant]
     Dosage: 300 mg, QD
     Route: 048
  5. PYRAZINAMIDE [Concomitant]
     Dosage: 500 mg, TID
     Route: 048
  6. RIFADIN [Concomitant]
     Dosage: 600 mg, QD
     Route: 048
  7. XIFAXAN [Concomitant]
     Dosage: 550 mg, BID
     Route: 048
  8. ATIVAN [Concomitant]
     Dosage: 0.5 mg, Q8H
     Route: 048
  9. RITALIN [Concomitant]
     Dosage: 5 mg, BID
     Route: 048
  10. ROXICODONE [Concomitant]
     Dosage: 5 - 10 mg, Q4HP
     Route: 048
  11. PRILOSEC [Concomitant]
     Dosage: 20 mg, UNK
     Route: 048
  12. ACTIGALL [Concomitant]
     Dosage: 300 mg, TID
     Route: 048
  13. NOVOLOG [Concomitant]
     Dosage: 3-15 units
     Route: 058
  14. LEVEMIR [Concomitant]
     Dosage: 40 U, daily
     Route: 058
  15. HUMALOG [Concomitant]
     Dosage: 3-15 units, QIDAC
     Route: 058
  16. GLUCOPHAGE [Concomitant]
     Dosage: 500 mg, BID
     Route: 048
  17. MAG-OX [Concomitant]
     Dosage: 800 mg, QD
     Route: 048
  18. MAG-OX [Concomitant]
     Dosage: 800 mg, TID
  19. SODIUM CHLORIDE [Concomitant]
     Dosage: 1000 ml, UNK
     Route: 042
  20. VITAMIN B6 [Concomitant]
     Dosage: 50 mg, QD
  21. CYMBALTA [Concomitant]
     Dosage: 50 mg, daily
     Route: 048
  22. SEROQUEL [Concomitant]
     Dosage: 50 mg, QHS
     Route: 048
  23. SEROQUEL [Concomitant]
     Dosage: 12.5 mg, Q4HP
     Route: 048
  24. FLEXERIL [Concomitant]
     Dosage: 10 mg, Q6H
     Route: 048
  25. ATIVAN [Concomitant]
     Dosage: 1 mg, TID
     Route: 048
  26. ATIVAN [Concomitant]
     Dosage: 1 - 2 mg, Q4HP
     Route: 042
  27. ZOFRAN [Concomitant]
     Dosage: 4 - 8 mg, Q4HP
     Route: 042
  28. ZOFRAN [Concomitant]
     Dosage: 8 mg, Q8HP
     Route: 048
  29. HALDOL [Concomitant]
     Dosage: 0.8- 2 mg, UNK
     Route: 048
  30. HALDOL [Concomitant]
     Dosage: 2 - 4 mg, Q4HP
     Route: 042
  31. DIPHEDRYL [Concomitant]
     Dosage: 50 mg, Q4H
     Route: 048
  32. DUONEB [Concomitant]
     Dosage: 3 ml, UNK
  33. BLISTEX [Concomitant]
  34. PERIDEX [Concomitant]
     Dosage: 30 ml, QIDP
     Route: 048
  35. PERIDEX [Concomitant]
     Dosage: 15 ml, UNK

REACTIONS (7)
  - Hepatic encephalopathy [Not Recovered/Not Resolved]
  - Hepatic enzyme increased [Not Recovered/Not Resolved]
  - Ammonia increased [Not Recovered/Not Resolved]
  - Pruritus [Unknown]
  - Insomnia [Unknown]
  - Epistaxis [Unknown]
  - Blood calcium decreased [Unknown]
